FAERS Safety Report 19725261 (Version 2)
Quarter: 2021Q3

REPORT INFORMATION
  Report Type: Spontaneous
  Country: US (occurrence: US)
  Receive Date: 20210819
  Receipt Date: 20210924
  Transmission Date: 20211014
  Serious: No
  Sender: FDA-Public Use
  Company Number: US-PFIZER INC-202101026336

PATIENT
  Age: 76 Year
  Sex: Female
  Weight: 37.65 kg

DRUGS (2)
  1. PREMARIN [Suspect]
     Active Substance: ESTROGENS, CONJUGATED
     Indication: OSTEOARTHRITIS
  2. PREMARIN [Suspect]
     Active Substance: ESTROGENS, CONJUGATED
     Indication: HORMONE REPLACEMENT THERAPY
     Dosage: 0.3 MG, DAILY
     Route: 048

REACTIONS (2)
  - Confusional state [Unknown]
  - Illness [Unknown]
